FAERS Safety Report 5378191-8 (Version None)
Quarter: 2007Q3

REPORT INFORMATION
  Report Type: 
  Country: None (occurrence: None)
  Receive Date: 20070705
  Receipt Date: 20070628
  Transmission Date: 20080115
  Serious: Yes (Life-Threatening, Other)
  Sender: FDA-Public Use
  Company Number: JP-JNJFOC-20070605575

PATIENT
  Sex: Male

DRUGS (9)
  1. ITRACONAZOLE [Suspect]
     Route: 041
  2. ITRACONAZOLE [Suspect]
     Indication: CANDIDIASIS
     Route: 041
  3. ARBEKACIN SULFATE [Concomitant]
     Route: 041
  4. FAMOTIDINE [Concomitant]
     Route: 042
  5. MINOCYCLINE HYDROCHLORIDE [Concomitant]
     Indication: PULMONARY MYCOSIS
     Route: 041
  6. METHYLPREDNISOLONE [Concomitant]
     Indication: ACUTE PULMONARY OEDEMA
     Route: 041
  7. MIDAZOLAM HCL [Concomitant]
     Route: 041
  8. DOPAMINE HCL [Concomitant]
     Route: 041
  9. MEROPENEM TRIHYDRATE [Concomitant]
     Indication: PULMONARY MYCOSIS
     Route: 041

REACTIONS (2)
  - BLOOD PRESSURE DECREASED [None]
  - SHOCK [None]
